FAERS Safety Report 8917726 (Version 1)
Quarter: 2012Q4

REPORT INFORMATION
  Report Type: 
  Country: US (occurrence: US)
  Receive Date: 20121119
  Receipt Date: 20121119
  Transmission Date: 20130627
  Serious: Yes (Other)
  Sender: FDA-Public Use
  Company Number: CHPA2012US023329

PATIENT
  Age: 69 Year
  Sex: Female

DRUGS (3)
  1. EXCEDRIN EXTRA STRENGTH [Suspect]
     Indication: HEADACHE
     Dosage: 2 DF per day, as needed
     Route: 048
  2. EXCEDRIN MIGRAINE [Suspect]
     Indication: HEADACHE
     Dosage: 2 DF per day, as needed
     Route: 048
     Dates: start: 2012
  3. BUFFERIN                           /00009201/ [Concomitant]
     Indication: HEADACHE
     Dosage: Unk, Unk
     Route: 048

REACTIONS (2)
  - Blood pressure increased [Recovered/Resolved]
  - Gastrooesophageal reflux disease [Not Recovered/Not Resolved]
